FAERS Safety Report 22071893 (Version 8)
Quarter: 2023Q4

REPORT INFORMATION
  Report Type: Report from Study
  Country: PT (occurrence: PT)
  Receive Date: 20230307
  Receipt Date: 20231030
  Transmission Date: 20240110
  Serious: Yes (Hospitalization)
  Sender: FDA-Public Use
  Company Number: PT-AMGEN-PRTCT2023039368

PATIENT
  Age: 58 Year
  Sex: Female
  Weight: 64.1 kg

DRUGS (12)
  1. SOTORASIB [Suspect]
     Active Substance: SOTORASIB
     Indication: K-ras gene mutation
     Dosage: 240 MILLIGRAM
     Route: 048
     Dates: start: 20211221
  2. SOTORASIB [Suspect]
     Active Substance: SOTORASIB
     Indication: Non-small cell lung cancer stage IV
     Dosage: UNK
     Route: 048
     Dates: start: 20230312
  3. DICLOFENAC [Concomitant]
     Active Substance: DICLOFENAC
     Dosage: 50 MILLIGRAM
     Route: 048
     Dates: start: 20211221
  4. FENTANYL [Concomitant]
     Active Substance: FENTANYL\FENTANYL CITRATE
     Dosage: 50 MICROGRAM
     Route: 062
     Dates: start: 20220914
  5. PREDNISOLONE [Concomitant]
     Active Substance: PREDNISOLONE
     Dosage: 20 MILLIGRAM
     Route: 048
     Dates: start: 20221213
  6. MEGACE [Concomitant]
     Active Substance: MEGESTROL ACETATE
     Dosage: 160 MILLIGRAM
     Route: 048
     Dates: start: 20221213
  7. ONDANSETRON [Concomitant]
     Active Substance: ONDANSETRON
     Dosage: 4 MILLIGRAM
     Route: 048
     Dates: start: 20221122
  8. VOLTAREN [Concomitant]
     Active Substance: DICLOFENAC SODIUM
     Dosage: 75 MILLIGRAM
     Route: 048
     Dates: start: 20221122
  9. ACETAMINOPHEN [Concomitant]
     Active Substance: ACETAMINOPHEN
     Dosage: 1000 MILLIGRAM
     Route: 048
     Dates: start: 20210921
  10. ETHYL LOFLAZEPATE [Concomitant]
     Active Substance: ETHYL LOFLAZEPATE
     Dosage: 2 MILLIGRAM
     Route: 048
     Dates: start: 202112, end: 20230310
  11. AMIODARONE [Concomitant]
     Active Substance: AMIODARONE
     Dosage: 300 MILLIGRAM
     Route: 042
     Dates: start: 20230210, end: 20230210
  12. EZETIMIBE\ROSUVASTATIN [Concomitant]
     Active Substance: EZETIMIBE\ROSUVASTATIN
     Dosage: 2 MILLIGRAM
     Route: 048
     Dates: start: 20220608

REACTIONS (1)
  - Pericardial effusion [Recovered/Resolved]

NARRATIVE: CASE EVENT DATE: 20230303
